FAERS Safety Report 8232048-3 (Version None)
Quarter: 2012Q1

REPORT INFORMATION
  Report Type: 
  Country: None (occurrence: None)
  Receive Date: 20120323
  Receipt Date: 20120312
  Transmission Date: 20120608
  Serious: Yes (Other)
  Sender: FDA-Public Use
  Company Number: DE-TEVA-328106GER

PATIENT
  Sex: Female

DRUGS (1)
  1. OXAZEPAM [Suspect]
     Indication: DRUG WITHDRAWAL SYNDROME
     Route: 048

REACTIONS (16)
  - SUICIDAL IDEATION [None]
  - FEAR OF DEATH [None]
  - TACHYCARDIA [None]
  - VOMITING [None]
  - HEPATIC PAIN [None]
  - MUSCLE SPASMS [None]
  - SLEEP DISORDER [None]
  - FEAR [None]
  - TREMOR [None]
  - DECREASED APPETITE [None]
  - DISORIENTATION [None]
  - ASTHENIA [None]
  - LIVER DISORDER [None]
  - DYSPNOEA [None]
  - CHEST DISCOMFORT [None]
  - HYPERTENSION [None]
